FAERS Safety Report 20600204 (Version 1)
Quarter: 2022Q1

REPORT INFORMATION
  Report Type: Spontaneous
  Country: CN (occurrence: CN)
  Receive Date: 20220316
  Receipt Date: 20220316
  Transmission Date: 20220423
  Serious: Yes (Other)
  Sender: FDA-Public Use
  Company Number: CN-AstraZeneca-2022A105111

PATIENT

DRUGS (3)
  1. GOSERELIN [Suspect]
     Active Substance: GOSERELIN
     Indication: Prostatic specific antigen increased
     Dosage: 10.8 MG, ONCE EVERY THREE MONTHS
     Route: 058
     Dates: start: 201804
  2. ZOLADEX [Suspect]
     Active Substance: GOSERELIN ACETATE
     Indication: Prostatic specific antigen increased
     Dosage: UNK
     Route: 065
  3. BICALUTAMIDE [Suspect]
     Active Substance: BICALUTAMIDE
     Indication: Prostatic specific antigen increased
     Dosage: 50 MG, QD
     Route: 048

REACTIONS (2)
  - Prostate cancer [Unknown]
  - Haematuria [Unknown]
